FAERS Safety Report 9165581 (Version 1)
Quarter: 2013Q1

REPORT INFORMATION
  Report Type: Spontaneous
  Country: US (occurrence: None)
  Receive Date: 20130227
  Receipt Date: 20130227
  Transmission Date: 20140127
  Serious: Yes (Other)
  Sender: FDA-Public Use
  Company Number: DEP_00869_2013

PATIENT
  Age: 63 Year
  Sex: Male

DRUGS (1)
  1. GABAPENTIN [Suspect]
     Indication: PRODUCT USED FOR UNKNOWN INDICATION
     Dosage: (4900 MG QD), (DF)

REACTIONS (6)
  - Drug withdrawal syndrome [None]
  - Drug ineffective [None]
  - Hallucination [None]
  - Tachycardia [None]
  - Hyperhidrosis [None]
  - Agitation [None]
